FAERS Safety Report 4603583-1 (Version None)
Quarter: 2005Q1

REPORT INFORMATION
  Report Type: 
  Country: None (occurrence: None)
  Receive Date: 20050308
  Receipt Date: 20050222
  Transmission Date: 20050727
  Serious: Yes (Other)
  Sender: FDA-Public Use
  Company Number: DEU-2005-0001267

PATIENT
  Age: 87 Year
  Sex: Female
  Weight: 50 kg

DRUGS (2)
  1. MORPHINE SULFATE [Suspect]
     Indication: PAIN
     Dosage: 10MG, PRN; ORAL
     Route: 048
  2. MST           (MORPHINE SULFATE) CR TABLET [Concomitant]

REACTIONS (5)
  - DISORIENTATION [None]
  - HALLUCINATION [None]
  - NIGHTMARE [None]
  - PAIN [None]
  - TREATMENT NONCOMPLIANCE [None]
